FAERS Safety Report 6941596-5 (Version None)
Quarter: 2010Q3

REPORT INFORMATION
  Report Type: 
  Country: None (occurrence: None)
  Receive Date: 20100825
  Receipt Date: 20100812
  Transmission Date: 20110219
  Serious: Yes (Hospitalization)
  Sender: FDA-Public Use
  Company Number: US-ELI_LILLY_AND_COMPANY-US201004002813

PATIENT
  Sex: Female

DRUGS (3)
  1. FORTEO [Suspect]
     Indication: OSTEOPOROSIS
     Dosage: 20 UG, DAILY (1/D)
  2. SPIRONOLACTONE [Concomitant]
  3. COSOPT [Concomitant]

REACTIONS (2)
  - INTESTINAL OBSTRUCTION [None]
  - UMBILICAL HERNIA [None]
